FAERS Safety Report 21659634 (Version 2)
Quarter: 2025Q2

REPORT INFORMATION
  Report Type: Report from Study
  Country: US (occurrence: US)
  Receive Date: 20221129
  Receipt Date: 20250530
  Transmission Date: 20250716
  Serious: Yes (Other)
  Sender: ABBVIE
  Company Number: US-ABBVIE-4215011

PATIENT
  Age: 70 Year
  Sex: Male
  Weight: 90.718 kg

DRUGS (5)
  1. HUMIRA [Suspect]
     Active Substance: ADALIMUMAB
     Indication: Psoriatic arthropathy
     Dosage: CITRATE FREE, DOSE FORM: SOLUTION FOR INJECTION IN PRE-FILLED PEN, FORM STRENGTH: 40 MG
     Route: 058
     Dates: start: 20200101
  2. HUMIRA [Suspect]
     Active Substance: ADALIMUMAB
     Indication: Psoriasis
     Dosage: FORM STRENGTH: 40 MG, CITRATE FREE, DOSE FORM: SOLUTION FOR INJECTION IN PRE-FILLED PEN
     Route: 058
     Dates: start: 2021
  3. HUMIRA [Suspect]
     Active Substance: ADALIMUMAB
     Route: 058
     Dates: start: 2017
  4. CELEBREX [Concomitant]
     Active Substance: CELECOXIB
     Indication: Pain
  5. COVID-19 vaccine [Concomitant]
     Indication: COVID-19 immunisation

REACTIONS (4)
  - Limb injury [Not Recovered/Not Resolved]
  - Bladder cancer [Recovered/Resolved]
  - Recurrent cancer [Unknown]
  - Arthralgia [Not Recovered/Not Resolved]

NARRATIVE: CASE EVENT DATE: 20170101
